FAERS Safety Report 25832577 (Version 1)
Quarter: 2025Q3

REPORT INFORMATION
  Report Type: Spontaneous
  Country: JP (occurrence: JP)
  Receive Date: 20250922
  Receipt Date: 20250922
  Transmission Date: 20251020
  Serious: Yes (Hospitalization, Other)
  Sender: KYOWA
  Company Number: JP-KYOWAKIRIN-2025KK018179

PATIENT

DRUGS (1)
  1. CRYSVITA [Suspect]
     Active Substance: BUROSUMAB-TWZA
     Indication: Hereditary hypophosphataemic rickets
     Route: 058

REACTIONS (4)
  - Cholelithiasis [Unknown]
  - Cholecystitis [Not Recovered/Not Resolved]
  - Activities of daily living decreased [Unknown]
  - Gait disturbance [Unknown]
